FAERS Safety Report 21480027 (Version 1)
Quarter: 2022Q4

REPORT INFORMATION
  Report Type: Spontaneous
  Country: US (occurrence: US)
  Receive Date: 20221019
  Receipt Date: 20221019
  Transmission Date: 20230113
  Serious: No
  Sender: FDA-Public Use
  Company Number: US-ALLERGAN-2138239US

PATIENT
  Age: 78 Year
  Sex: Female

DRUGS (3)
  1. LINZESS [Suspect]
     Active Substance: LINACLOTIDE
     Indication: Constipation
     Dosage: 145 ?G
     Dates: start: 20211110, end: 20211110
  2. LINZESS [Suspect]
     Active Substance: LINACLOTIDE
     Dosage: 145 ?G
  3. Fiber drink [Concomitant]
     Indication: Constipation
     Dosage: UNK
     Route: 048

REACTIONS (7)
  - Hyperhidrosis [Recovering/Resolving]
  - Tremor [Recovered/Resolved]
  - Asthenia [Recovering/Resolving]
  - Presyncope [Recovering/Resolving]
  - Inappropriate schedule of product administration [Unknown]
  - Blood glucose decreased [Unknown]
  - Vomiting [Recovering/Resolving]

NARRATIVE: CASE EVENT DATE: 20211101
